FAERS Safety Report 8242505-1 (Version None)
Quarter: 2012Q1

REPORT INFORMATION
  Report Type: 
  Country: None (occurrence: None)
  Receive Date: 20120329
  Receipt Date: 20120319
  Transmission Date: 20120608
  Serious: No
  Sender: FDA-Public Use
  Company Number: US-B.I. PHARMACEUTICALS,INC./RIDGEFIELD-2012-BP-05154BP

PATIENT
  Sex: Male

DRUGS (7)
  1. MECLIZINE [Concomitant]
     Indication: DIZZINESS
     Route: 048
  2. CRESTOR [Concomitant]
     Indication: BLOOD CHOLESTEROL INCREASED
     Route: 048
  3. HYDROCHLOROTHIAZIDE [Concomitant]
     Indication: JOINT SWELLING
     Route: 048
  4. PRADAXA [Suspect]
     Indication: ATRIAL FIBRILLATION
     Dosage: 300 MG
     Route: 048
     Dates: start: 20110101
  5. ASPIRIN [Concomitant]
     Indication: PROPHYLAXIS
     Route: 048
  6. VERAPAMIL [Concomitant]
     Indication: ATRIAL FIBRILLATION
     Route: 048
  7. MELOXICAM [Concomitant]
     Indication: ARTHRALGIA
     Route: 048

REACTIONS (4)
  - OESOPHAGEAL PAIN [None]
  - BLEEDING TIME PROLONGED [None]
  - DYSGEUSIA [None]
  - HAEMORRHAGIC DIATHESIS [None]
